FAERS Safety Report 8057299-2 (Version None)
Quarter: 2012Q1

REPORT INFORMATION
  Report Type: 
  Country: None (occurrence: None)
  Receive Date: 20120119
  Receipt Date: 20120117
  Transmission Date: 20120608
  Serious: Yes (Other)
  Sender: FDA-Public Use
  Company Number: PHHY2011GR92954

PATIENT
  Age: 34 Year
  Sex: Female

DRUGS (1)
  1. EXTAVIA [Suspect]
     Indication: MULTIPLE SCLEROSIS
     Dates: start: 20110721

REACTIONS (3)
  - PYREXIA [None]
  - INJECTION SITE THROMBOSIS [None]
  - THROMBOSIS [None]
